FAERS Safety Report 8604620-X (Version None)
Quarter: 2012Q3

REPORT INFORMATION
  Report Type: 
  Country: None (occurrence: None)
  Receive Date: 20120820
  Receipt Date: 20120810
  Transmission Date: 20120928
  Serious: Yes (Hospitalization)
  Sender: FDA-Public Use
  Company Number: PHEH2012US014616

PATIENT
  Sex: Male

DRUGS (1)
  1. MYFORTIC [Suspect]
     Indication: RENAL TRANSPLANT
     Dosage: 360 MG, BID
     Route: 048

REACTIONS (8)
  - URINE ABNORMALITY [None]
  - ABASIA [None]
  - GOUT [None]
  - JOINT SWELLING [None]
  - DIVERTICULITIS [None]
  - GINGIVAL INFECTION [None]
  - TOOTH INFECTION [None]
  - TREMOR [None]
